FAERS Safety Report 20900481 (Version 1)
Quarter: 2022Q2

REPORT INFORMATION
  Report Type: Spontaneous
  Country: US (occurrence: None)
  Receive Date: 20220531
  Receipt Date: 20220531
  Transmission Date: 20220720
  Serious: Yes (Hospitalization)
  Sender: FDA-Public Use
  Company Number: None

PATIENT
  Sex: Female

DRUGS (2)
  1. DALFAMPRIDINE [Suspect]
     Active Substance: DALFAMPRIDINE
     Indication: Multiple sclerosis
     Dosage: FREQUENCY : EVERY 12 HOURS?
     Route: 048
     Dates: start: 20220112
  2. DALFAMPRIDIN TAB ER [Concomitant]

REACTIONS (3)
  - Ulcer haemorrhage [None]
  - Hypokinesia [None]
  - Fall [None]
